FAERS Safety Report 21199804 (Version 2)
Quarter: 2022Q3

REPORT INFORMATION
  Report Type: Spontaneous
  Country: US (occurrence: US)
  Receive Date: 20220811
  Receipt Date: 20220901
  Transmission Date: 20221026
  Serious: Yes (Other)
  Sender: FDA-Public Use
  Company Number: US-TEVA-2022-US-2062900

PATIENT
  Age: 65 Year
  Sex: Male

DRUGS (2)
  1. VENLAFAXINE [Suspect]
     Active Substance: VENLAFAXINE HYDROCHLORIDE
     Indication: Pelvic pain
     Route: 065
  2. ELIGARD [Suspect]
     Active Substance: LEUPROLIDE ACETATE
     Indication: Prostate cancer
     Dosage: HORMONAL THERAPY
     Route: 065

REACTIONS (4)
  - Pelvic pain [Recovering/Resolving]
  - Hot flush [Unknown]
  - Somnolence [Unknown]
  - Drug ineffective [Unknown]
